FAERS Safety Report 17703558 (Version 2)
Quarter: 2020Q2

REPORT INFORMATION
  Report Type: Report from Study
  Country: BR (occurrence: BR)
  Receive Date: 20200424
  Receipt Date: 20200604
  Transmission Date: 20200714
  Serious: Yes (Other)
  Sender: FDA-Public Use
  Company Number: BR-ROCHE-2588648

PATIENT
  Age: 10 Year
  Sex: Female

DRUGS (8)
  1. XOLAIR [Suspect]
     Active Substance: OMALIZUMAB
     Indication: ASTHMA
     Dosage: 1 DF, QMO (EVERY 28 DAYS)
     Route: 065
     Dates: start: 20190204
  2. XOLAIR [Suspect]
     Active Substance: OMALIZUMAB
     Dosage: 2 DF (150 MG), EVERY 28 DAYS
     Route: 058
     Dates: start: 20200320
  3. XOLAIR [Suspect]
     Active Substance: OMALIZUMAB
     Dosage: 2 DF (150 MG), EVERY 28 DAYS
     Route: 058
     Dates: start: 20200416
  4. XOLAIR [Suspect]
     Active Substance: OMALIZUMAB
     Dosage: 2 DF (150 MG), EVERY 28 DAYS
     Route: 058
     Dates: start: 20200514
  5. XOLAIR [Suspect]
     Active Substance: OMALIZUMAB
     Dosage: 2 DF (150 MG), EVERY 28 DAYS
     Route: 058
     Dates: start: 20200220
  6. EBASTEL [Concomitant]
     Active Substance: EBASTINE
     Indication: CHRONIC SPONTANEOUS URTICARIA
     Dosage: UNK, Q12H
     Route: 048
  7. HIXIZINE [Concomitant]
     Active Substance: HYDROXYZINE HYDROCHLORIDE
     Indication: CHRONIC SPONTANEOUS URTICARIA
     Dosage: UNK, Q14H, ACCORDING TO GRAVITY
     Route: 048
  8. XOLAIR [Suspect]
     Active Substance: OMALIZUMAB
     Indication: URTICARIA
     Dosage: 2 DF (150 MG), EVERY 28 DAYS
     Route: 058
     Dates: start: 20200124

REACTIONS (2)
  - Hypothermia [Not Recovered/Not Resolved]
  - Body temperature increased [Recovered/Resolved]

NARRATIVE: CASE EVENT DATE: 201912
